FAERS Safety Report 9172335 (Version 1)
Quarter: 2013Q1

REPORT INFORMATION
  Report Type: Spontaneous
  Country: IT (occurrence: IT)
  Receive Date: 20130319
  Receipt Date: 20130319
  Transmission Date: 20140127
  Serious: Yes (Hospitalization, Other)
  Sender: FDA-Public Use
  Company Number: IT-PFIZER INC-2013089155

PATIENT
  Age: 89 Year
  Sex: Male

DRUGS (9)
  1. TRIATEC [Suspect]
     Indication: HYPERTENSION
     Dosage: UNK, 2X/DAY
     Route: 048
     Dates: start: 20120828, end: 20130218
  2. FUROSEMIDE [Concomitant]
     Indication: HYPERTENSION
     Dosage: UNK
     Dates: start: 20130216, end: 20130219
  3. LASIX [Concomitant]
     Indication: HYPERTENSION
     Dosage: UNK
     Dates: start: 20120828, end: 20130215
  4. PLAVIX [Concomitant]
     Dosage: UNK
  5. AVODART [Concomitant]
     Dosage: UNK
  6. XATRAL [Concomitant]
     Dosage: UNK
  7. KANRENOL [Concomitant]
     Dosage: UNK
  8. PANTORC [Concomitant]
     Dosage: UNK
  9. DELORAZEPAM [Concomitant]
     Dosage: UNK

REACTIONS (2)
  - Hyponatraemia [Recovered/Resolved]
  - Blood creatinine increased [Recovered/Resolved]
